FAERS Safety Report 10286127 (Version 2)
Quarter: 2014Q3

REPORT INFORMATION
  Report Type: Spontaneous
  Country: IT (occurrence: None)
  Receive Date: 20140703
  Receipt Date: 20140725
  Transmission Date: 20150326
  Serious: Yes (Other)
  Sender: FDA-Public Use
  Company Number: 2412889

PATIENT
  Age: 58 Year
  Sex: Female
  Weight: 64 kg

DRUGS (1)
  1. PACLITAXEL. [Suspect]
     Active Substance: PACLITAXEL
     Indication: OVARIAN CANCER METASTATIC
     Dosage: 290 MG MILLIGRAM(S) ( CYCLICAL ) INTRAVENOUS (NOT OTHERWISE SPECIFIED)
     Route: 042
     Dates: start: 20140512, end: 20140610

REACTIONS (2)
  - Throat tightness [None]
  - Erythema [None]

NARRATIVE: CASE EVENT DATE: 20140610
